FAERS Safety Report 18382731 (Version 1)
Quarter: 2020Q4

REPORT INFORMATION
  Report Type: Spontaneous
  Country: US (occurrence: US)
  Receive Date: 20201014
  Receipt Date: 20201014
  Transmission Date: 20210114
  Serious: Yes (Hospitalization)
  Sender: FDA-Public Use
  Company Number: US-FARMAPROD-202010-1314

PATIENT
  Sex: Female
  Weight: 88.53 kg

DRUGS (17)
  1. VITAMIN D3-ALOE [Concomitant]
     Dosage: 120 MG ALOE VERA/ 1000 IU VIT D3
  2. OXERVATE [Suspect]
     Active Substance: CENEGERMIN-BKBJ
     Indication: NEUROTROPHIC KERATOPATHY
     Route: 047
     Dates: start: 20200909
  3. METHOTREXATE. [Concomitant]
     Active Substance: METHOTREXATE
  4. CYCLOBENZAPRINE HCL [Concomitant]
     Active Substance: CYCLOBENZAPRINE HYDROCHLORIDE
  5. NORCO [Concomitant]
     Active Substance: ACETAMINOPHEN\HYDROCODONE BITARTRATE
     Dosage: 10 MG-325 MG
  6. IRON 325(65) [Concomitant]
     Dosage: 65 MG IRON (325 MG FERROUS SULFATE)
  7. METFORMIN ER GASTRIC [Concomitant]
  8. GLIMEPIRIDE. [Concomitant]
     Active Substance: GLIMEPIRIDE
  9. SYMBICORT HFA AER AD [Concomitant]
     Dosage: 160-4.5 MCG
  10. PREDNISONE. [Concomitant]
     Active Substance: PREDNISONE
  11. OXYCODONE HYDROCHLORIDE. [Concomitant]
     Active Substance: OXYCODONE HYDROCHLORIDE
     Route: 048
  12. ASPIRIN 81 [Concomitant]
     Active Substance: ASPIRIN
  13. LOSARTAN-HYDROCHLOROTHIAZIDE [Concomitant]
     Active Substance: HYDROCHLOROTHIAZIDE\LOSARTAN
  14. VALTREX [Concomitant]
     Active Substance: VALACYCLOVIR HYDROCHLORIDE
  15. BACLOFEN. [Concomitant]
     Active Substance: BACLOFEN
  16. METOPROLOL SUCCINATE. [Concomitant]
     Active Substance: METOPROLOL SUCCINATE
  17. BASAGLAR KWIKPEN U-100 [Concomitant]

REACTIONS (4)
  - Ocular hyperaemia [Unknown]
  - Somnolence [Unknown]
  - Back injury [Unknown]
  - Eye pain [Not Recovered/Not Resolved]
